FAERS Safety Report 15497637 (Version 1)
Quarter: 2018Q4

REPORT INFORMATION
  Report Type: Spontaneous
  Country: DK (occurrence: DK)
  Receive Date: 20181015
  Receipt Date: 20181015
  Transmission Date: 20190205
  Serious: Yes (Other)
  Sender: FDA-Public Use
  Company Number: DK-AMICUS THERAPEUTICS, INC.-AMI_253

PATIENT
  Age: 54 Year
  Sex: Female
  Weight: 121 kg

DRUGS (10)
  1. FURIX [Concomitant]
     Active Substance: FUROSEMIDE
     Indication: OEDEMA
     Dosage: 40 MG, PRN (NO MORE THAN 1 TAB DAILY)
     Route: 048
     Dates: start: 20140526
  2. KALEORID [Concomitant]
     Active Substance: POTASSIUM CHLORIDE
     Indication: PROPHYLAXIS
     Dosage: 750 MG, QD
     Route: 048
     Dates: start: 20140526
  3. PARACETAMOL [Concomitant]
     Active Substance: ACETAMINOPHEN
     Indication: PAIN
     Dosage: 1 G (500 MG TABLET STRENGTH), PRN (MAX 4 TIMES PER DAY)
     Route: 048
     Dates: start: 1980
  4. ZOPICLONE [Concomitant]
     Active Substance: ZOPICLONE
     Indication: INSOMNIA
     Dosage: 7.5 MG, QD
     Route: 048
     Dates: start: 20161108
  5. NITROGLYCERIN. [Concomitant]
     Active Substance: NITROGLYCERIN
     Indication: ANGINA PECTORIS
     Dosage: UNK
     Route: 060
     Dates: start: 20160505
  6. ATENODAN [Concomitant]
     Indication: ARRHYTHMIA
     Dosage: 50 MG, QD
     Route: 048
     Dates: start: 201106
  7. IBUPROFEN ^ACTAVIS^ [Concomitant]
     Active Substance: IBUPROFEN
     Indication: PAIN
     Dosage: 400 MG, PRN
     Route: 048
     Dates: start: 1980
  8. DIPYRIDAMOL/ACETYLSALICYLSYRE ^2CARE4^ [Concomitant]
     Indication: THROMBOSIS PROPHYLAXIS
     Dosage: 200 + 25 MG (2 MOL/ML)
     Route: 048
     Dates: start: 2007
  9. GALAFOLD [Suspect]
     Active Substance: MIGALASTAT HYDROCHLORIDE
     Indication: FABRY^S DISEASE
     Dosage: 123 MG, QOD
     Route: 048
     Dates: start: 20140207
  10. FURIX [Concomitant]
     Active Substance: FUROSEMIDE
     Indication: PROPHYLAXIS

REACTIONS (3)
  - Renal colic [Recovering/Resolving]
  - Pain [Recovered/Resolved]
  - Nephrolithiasis [Recovered/Resolved]

NARRATIVE: CASE EVENT DATE: 20180314
